FAERS Safety Report 8274988-5 (Version None)
Quarter: 2012Q1

REPORT INFORMATION
  Report Type: 
  Country: None (occurrence: None)
  Receive Date: 20120309
  Receipt Date: 20120130
  Transmission Date: 20120608
  Serious: Yes (Death)
  Sender: FDA-Public Use
  Company Number: TH-2012-00070

PATIENT
  Age: 40 Year
  Sex: Male

DRUGS (15)
  1. AMITRIPTYLINE HCL [Concomitant]
  2. SINGULAIR [Concomitant]
  3. ACYCLOVIR [Concomitant]
  4. VITAMIN D [Concomitant]
  5. AMBIEN [Concomitant]
  6. LORTAB [Concomitant]
  7. FORTEO [Concomitant]
  8. NEURONTIN [Concomitant]
  9. EGRIFTA [Suspect]
     Indication: LIPODYSTROPHY ACQUIRED
     Dosage: 1 IN 1 D, SUBCUTANEOUS
     Route: 058
     Dates: start: 20110101
  10. DIOVAN [Concomitant]
  11. PRAVASTATIN [Concomitant]
  12. EPZICOM (LAMIVUDINE, ABACAVIR SULFATE) [Concomitant]
  13. KALETRA [Concomitant]
  14. OMEPRAZOLE [Concomitant]
  15. ATENOLOL [Concomitant]

REACTIONS (6)
  - VITAMIN D DECREASED [None]
  - HEADACHE [None]
  - DEATH [None]
  - DYSPEPSIA [None]
  - CHEST PAIN [None]
  - BLOOD CHOLESTEROL INCREASED [None]
